FAERS Safety Report 7467238-0 (Version None)
Quarter: 2011Q2

REPORT INFORMATION
  Report Type: 
  Country: None (occurrence: None)
  Receive Date: 20110428
  Receipt Date: 20110413
  Transmission Date: 20111010
  Serious: Yes (Hospitalization)
  Sender: FDA-Public Use
  Company Number: 2011MA003841

PATIENT
  Age: 62 Year
  Sex: Female

DRUGS (2)
  1. OMEPRAZOLE [Concomitant]
  2. IBUPROFEN [Suspect]
     Indication: PLANTAR FASCIITIS
     Dosage: 600 MG, OD, PO
     Route: 048

REACTIONS (4)
  - COLONIC POLYP [None]
  - RECTAL HAEMORRHAGE [None]
  - GASTROINTESTINAL NECROSIS [None]
  - ABDOMINAL PAIN [None]
